FAERS Safety Report 4452527-4 (Version None)
Quarter: 2004Q3

REPORT INFORMATION
  Report Type: 
  Country: None (occurrence: None)
  Receive Date: 20040813
  Receipt Date: 20040527
  Transmission Date: 20050211
  Serious: Yes (Other)
  Sender: FDA-Public Use
  Company Number: PHEH2004US04579A

PATIENT
  Age: 72 Year
  Sex: Male

DRUGS (8)
  1. VISUDYNE [Suspect]
     Indication: MACULAR DEGENERATION
     Dosage: 2 MG/ML ONCE IV
     Route: 042
     Dates: start: 20040128, end: 20040128
  2. VISUDYNE [Suspect]
     Indication: MACULAR DEGENERATION
     Dates: start: 20040505, end: 20040505
  3. KENALOG [Suspect]
     Dates: start: 20040128, end: 20040128
  4. ACCUPRIL [Concomitant]
  5. LIPITOR [Concomitant]
  6. HYDROCHLOROTHIAZIDE [Concomitant]
  7. ZOLOFT [Concomitant]
  8. MULTIVITAMIN [Concomitant]

REACTIONS (6)
  - INJECTION SITE ERYTHEMA [None]
  - INJECTION SITE EXTRAVASATION [None]
  - INJECTION SITE PAIN [None]
  - INTRAOCULAR PRESSURE INCREASED [None]
  - RASH PRURITIC [None]
  - VISUAL ACUITY REDUCED [None]
